FAERS Safety Report 11157828 (Version 1)
Quarter: 2015Q2

REPORT INFORMATION
  Report Type: Spontaneous
  Country: DE (occurrence: None)
  Receive Date: 20150601
  Receipt Date: 20150601
  Transmission Date: 20150821
  Serious: Yes (Other)
  Sender: FDA-Public Use
  Company Number: DE-H14001-15-00812

PATIENT
  Age: 71 Year
  Sex: Male

DRUGS (7)
  1. LEUCOVORIN (CALCIUM FOLINATE) (UNKNOWN) (CALCIUM FOLINATE) [Suspect]
     Active Substance: LEUCOVORIN
     Indication: COLON CANCER
  2. 5-FLUOROURACIL [Suspect]
     Active Substance: FLUOROURACIL
     Indication: COLON CANCER
  3. OXALIPLATIN (OXALIPLATIN) (UNKNOWN) (OXALIPLATIN) [Suspect]
     Active Substance: OXALIPLATIN
     Indication: METASTASES TO LIVER
  4. OXALIPLATIN (OXALIPLATIN) (UNKNOWN) (OXALIPLATIN) [Suspect]
     Active Substance: OXALIPLATIN
     Indication: COLON CANCER
  5. 5-FLUOROURACIL [Suspect]
     Active Substance: FLUOROURACIL
     Indication: METASTASES TO LIVER
  6. BEVACIZUMAB [Concomitant]
     Active Substance: BEVACIZUMAB
  7. LEUCOVORIN (CALCIUM FOLINATE) (UNKNOWN) (CALCIUM FOLINATE) [Suspect]
     Active Substance: LEUCOVORIN
     Indication: METASTASES TO LIVER

REACTIONS (6)
  - Toxicity to various agents [None]
  - IgA nephropathy [None]
  - Hypersensitivity vasculitis [None]
  - Acute kidney injury [None]
  - Nephrotic syndrome [None]
  - Chronic kidney disease [None]
